FAERS Safety Report 5813755-6 (Version None)
Quarter: 2008Q3

REPORT INFORMATION
  Report Type: 
  Country: None (occurrence: None)
  Receive Date: 20080717
  Receipt Date: 20080708
  Transmission Date: 20090109
  Serious: Yes (Other)
  Sender: FDA-Public Use
  Company Number: PHHY2008BR13571

PATIENT
  Age: 7 Year
  Sex: Male
  Weight: 24 kg

DRUGS (2)
  1. RITALIN [Suspect]
     Indication: PSYCHOMOTOR HYPERACTIVITY
     Dosage: 1 DF/ DAY
     Route: 048
  2. ALBENDAZOLE [Concomitant]
     Indication: HELMINTHIC INFECTION
     Dosage: 1  TABLET UNIQUE DOSE
     Dates: start: 20080602

REACTIONS (5)
  - DIZZINESS [None]
  - HALLUCINATION, VISUAL [None]
  - PYREXIA [None]
  - VIRAL INFECTION [None]
  - VISUAL IMPAIRMENT [None]
